FAERS Safety Report 20523524 (Version 2)
Quarter: 2022Q1

REPORT INFORMATION
  Report Type: Report from Study
  Country: US (occurrence: US)
  Receive Date: 20220228
  Receipt Date: 20220303
  Transmission Date: 20220423
  Serious: Yes (Other)
  Sender: FDA-Public Use
  Company Number: US-ABBVIE-22K-163-4289035-00

PATIENT
  Age: 30 Year
  Sex: Female
  Weight: 81.720 kg

DRUGS (1)
  1. HUMIRA [Suspect]
     Active Substance: ADALIMUMAB
     Indication: Psoriasis
     Dosage: CITRATE FREE
     Route: 058
     Dates: start: 202110

REACTIONS (3)
  - Tooth impacted [Unknown]
  - Unevaluable event [Unknown]
  - Dizziness [Unknown]

NARRATIVE: CASE EVENT DATE: 20220201
